FAERS Safety Report 6023376-0 (Version None)
Quarter: 2008Q4

REPORT INFORMATION
  Report Type: 
  Country: None (occurrence: None)
  Receive Date: 20081222
  Receipt Date: 20081114
  Transmission Date: 20090506
  Serious: No
  Sender: FDA-Public Use
  Company Number: ALL1-2008-03343

PATIENT
  Age: 12 Year
  Sex: Male
  Weight: 38.1 kg

DRUGS (1)
  1. VYVANSE [Suspect]
     Indication: ATTENTION DEFICIT/HYPERACTIVITY DISORDER
     Dosage: 30 MG, 1X/DAY:QD, ORAL
     Route: 048
     Dates: start: 20081031, end: 20081112

REACTIONS (10)
  - ABDOMINAL PAIN UPPER [None]
  - AGGRESSION [None]
  - INFECTION [None]
  - IRRITABILITY [None]
  - MALAISE [None]
  - NEGATIVISM [None]
  - RASH MORBILLIFORM [None]
  - SOMNOLENCE [None]
  - TINEA CRURIS [None]
  - WEIGHT DECREASED [None]
